FAERS Safety Report 9090160 (Version 8)
Quarter: 2015Q3

REPORT INFORMATION
  Report Type: Spontaneous
  Country: JP (occurrence: JP)
  Receive Date: 20130201
  Receipt Date: 20150818
  Transmission Date: 20151125
  Serious: Yes (Hospitalization)
  Sender: FDA-Public Use
  Company Number: JP-SANOFI-AVENTIS-2013SA005980

PATIENT
  Age: 76 Year
  Sex: Female
  Weight: 42.7 kg

DRUGS (7)
  1. SOLOSTAR [Concomitant]
     Active Substance: DEVICE
     Indication: DEVICE THERAPY
     Dates: start: 20121030, end: 20121118
  2. WARFARIN [Concomitant]
     Active Substance: WARFARIN
     Indication: PERIPHERAL ARTERIAL OCCLUSIVE DISEASE
     Route: 048
     Dates: start: 20120731
  3. PLETAAL [Concomitant]
     Active Substance: CILOSTAZOL
     Indication: PERIPHERAL ARTERIAL OCCLUSIVE DISEASE
     Route: 048
     Dates: start: 20120731
  4. OLMETEC [Concomitant]
     Active Substance: OLMESARTAN MEDOXOMIL
     Indication: HYPERTENSION
     Route: 048
     Dates: start: 20120709
  5. LIPOVAS [Concomitant]
     Active Substance: PRAVASTATIN SODIUM
     Indication: DYSLIPIDAEMIA
     Route: 048
     Dates: start: 20120709
  6. HUMALOG [Suspect]
     Active Substance: INSULIN LISPRO
     Route: 065
  7. LANTUS SOLOSTAR [Suspect]
     Active Substance: INSULIN GLARGINE
     Indication: DIABETES MELLITUS
     Dosage: DOSE:6 UNIT(S)
     Route: 058
     Dates: start: 20121030, end: 20121118

REACTIONS (5)
  - Insulin autoimmune syndrome [Recovered/Resolved]
  - Anti-insulin antibody positive [Recovered/Resolved]
  - Hypoglycaemia [Recovered/Resolved]
  - Nausea [Recovered/Resolved]
  - Chills [Recovered/Resolved]

NARRATIVE: CASE EVENT DATE: 20121114
